FAERS Safety Report 19469645 (Version 2)
Quarter: 2025Q2

REPORT INFORMATION
  Report Type: Spontaneous
  Country: ES (occurrence: ES)
  Receive Date: 20210629
  Receipt Date: 20250627
  Transmission Date: 20250716
  Serious: Yes (Hospitalization)
  Sender: AUROBINDO
  Company Number: ES-CELLTRION HEALTHCARE HUNGARY KFT-2021ES007167

PATIENT

DRUGS (8)
  1. ONDANSETRON [Suspect]
     Active Substance: ONDANSETRON
     Indication: Nodal marginal zone B-cell lymphoma stage IV
     Route: 042
  2. ACETAMINOPHEN [Suspect]
     Active Substance: ACETAMINOPHEN
     Indication: Nodal marginal zone B-cell lymphoma stage IV
     Route: 042
  3. BENDAMUSTINE [Suspect]
     Active Substance: BENDAMUSTINE
     Indication: Nodal marginal zone B-cell lymphoma stage IV
     Route: 042
  4. DEXCHLORPHENIRAMINE [Suspect]
     Active Substance: DEXCHLORPHENIRAMINE
     Indication: Nodal marginal zone B-cell lymphoma stage IV
     Route: 042
  5. DEXAMETHASONE [Suspect]
     Active Substance: DEXAMETHASONE
     Indication: Nodal marginal zone B-cell lymphoma stage IV
     Route: 042
  6. TRUXIMA [Suspect]
     Active Substance: RITUXIMAB-ABBS
     Indication: Product used for unknown indication
     Route: 065
  7. TRUXIMA [Suspect]
     Active Substance: RITUXIMAB-ABBS
     Route: 042
     Dates: start: 202010
  8. TRUXIMA [Suspect]
     Active Substance: RITUXIMAB-ABBS
     Route: 065
     Dates: start: 202012

REACTIONS (1)
  - Serum sickness [Recovered/Resolved]
